FAERS Safety Report 5004894-0 (Version None)
Quarter: 2006Q1

REPORT INFORMATION
  Report Type: 
  Country: None (occurrence: None)
  Receive Date: 20060321
  Receipt Date: 20060112
  Transmission Date: 20060701
  Serious: No
  Sender: FDA-Public Use
  Company Number: 2006US000139

PATIENT
  Age: 60 Year
  Sex: Female

DRUGS (16)
  1. VESICARE [Suspect]
     Indication: URINARY INCONTINENCE
     Dosage: 5 MG, UID/QD ORAL
     Route: 048
  2. LIPITOR [Concomitant]
  3. NORVASC [Concomitant]
  4. LODINE [Concomitant]
  5. AZULFIDINE [Concomitant]
  6. SYNTHROID [Concomitant]
  7. LEVOXYL [Concomitant]
  8. MAXZIDE [Concomitant]
  9. ROBINUL FORTE (GLYCOPYRRONIUM BROMIDE) [Concomitant]
  10. DARVOCET-N (DEXTROPROPOXYPHENE NAPSILATE) [Concomitant]
  11. ULTRACET [Concomitant]
  12. AMBIEN [Concomitant]
  13. SONATA [Concomitant]
  14. EVOXAC [Concomitant]
  15. K-DUR 10 [Concomitant]
  16. PREDNISONE TAB [Concomitant]

REACTIONS (1)
  - INCONTINENCE [None]
